FAERS Safety Report 5416646-8 (Version None)
Quarter: 2007Q3

REPORT INFORMATION
  Report Type: 
  Country: None (occurrence: None)
  Receive Date: 20070814
  Receipt Date: 20070806
  Transmission Date: 20080115
  Serious: Yes (Life-Threatening, Hospitalization, Disabling)
  Sender: FDA-Public Use
  Company Number: E2090-00284-SPO-JP

PATIENT
  Age: 61 Year
  Sex: Male

DRUGS (14)
  1. ZONISAMIDE [Suspect]
     Indication: CEREBRAL HAEMORRHAGE
     Dosage: 200 MG, 1 IN 1 D, ORAL
     Route: 048
     Dates: start: 20070614, end: 20070717
  2. ADALAT [Concomitant]
  3. FAMOTIDINE [Concomitant]
  4. PALGIN           (PALGIN) [Concomitant]
  5. GRAMALIL        (TIAPRIDE HYDROCHLORIDE) [Concomitant]
  6. RISPERDAL [Concomitant]
  7. BLOPRESS             (CANDESARTAN CILEXETIL) [Concomitant]
  8. DIAZEPAM [Concomitant]
  9. MYSLEE      (ZOLPIDEM)(ZOLPIDEM) [Concomitant]
  10. TAMSULOSIN HCL [Concomitant]
  11. LEVOFLOXACIN [Concomitant]
  12. URINORM       (BENZBROMARONE) [Concomitant]
  13. KAMAG G             (MAGNESIUM OXIDE) [Concomitant]
  14. DEPAKENE [Concomitant]

REACTIONS (10)
  - BLOOD POTASSIUM INCREASED [None]
  - DEPRESSED LEVEL OF CONSCIOUSNESS [None]
  - DIABETIC KETOACIDOSIS [None]
  - DRUG RASH WITH EOSINOPHILIA AND SYSTEMIC SYMPTOMS [None]
  - GASTRODUODENAL ULCER [None]
  - MELAENA [None]
  - METABOLIC ACIDOSIS [None]
  - PYREXIA [None]
  - TACHYPNOEA [None]
  - TYPE 1 DIABETES MELLITUS [None]
